FAERS Safety Report 11081448 (Version 1)
Quarter: 2015Q2

REPORT INFORMATION
  Report Type: Spontaneous
  Country: US (occurrence: US)
  Receive Date: 20150501
  Receipt Date: 20150501
  Transmission Date: 20150821
  Serious: No
  Sender: FDA-Public Use
  Company Number: US-ABBVIE-14P-163-1263114-00

PATIENT
  Sex: Female
  Weight: 74.91 kg

DRUGS (5)
  1. MULTIVITAMIN [Concomitant]
     Active Substance: VITAMINS
     Indication: PRODUCT USED FOR UNKNOWN INDICATION
  2. CUMULUS [Concomitant]
     Indication: PRODUCT USED FOR UNKNOWN INDICATION
     Route: 013
  3. XANAX [Concomitant]
     Active Substance: ALPRAZOLAM
     Indication: PRODUCT USED FOR UNKNOWN INDICATION
     Dosage: EVERY MORNING
  4. CREON [Suspect]
     Active Substance: PANCRELIPASE AMYLASE\PANCRELIPASE LIPASE\PANCRELIPASE PROTEASE
     Indication: HEPATIC CANCER
     Dates: start: 201406
  5. HYDROCODONE [Concomitant]
     Active Substance: HYDROCODONE
     Indication: SCIATICA

REACTIONS (3)
  - Sinusitis [Recovering/Resolving]
  - Dry eye [Not Recovered/Not Resolved]
  - Oral mucosal blistering [Not Recovered/Not Resolved]
